FAERS Safety Report 16469428 (Version 1)
Quarter: 2019Q3

REPORT INFORMATION
  Report Type: Spontaneous
  Country: US (occurrence: US)
  Receive Date: 20190621
  Receipt Date: 20190621
  Transmission Date: 20191004
  Serious: Yes (Other)
  Sender: FDA-Public Use
  Company Number: None

PATIENT
  Age: 59 Year
  Sex: Female
  Weight: 63.9 kg

DRUGS (11)
  1. FIORICET [Concomitant]
     Active Substance: ACETAMINOPHEN\BUTALBITAL\CAFFEINE
  2. AIMOVIG [Suspect]
     Active Substance: ERENUMAB-AOOE
     Indication: MIGRAINE
     Route: 030
  3. BENICAR [Concomitant]
     Active Substance: OLMESARTAN MEDOXOMIL
  4. PRILOSEC [Concomitant]
     Active Substance: OMEPRAZOLE MAGNESIUM
  5. ZANTAC [Concomitant]
     Active Substance: RANITIDINE HYDROCHLORIDE
  6. IMITREX [Concomitant]
     Active Substance: SUMATRIPTAN SUCCINATE
  7. SYNTHROID [Concomitant]
     Active Substance: LEVOTHYROXINE SODIUM
  8. ESTROGEN PATCHES [Concomitant]
  9. PROGESTERONE. [Concomitant]
     Active Substance: PROGESTERONE
  10. META-GENICS MULTI INTENSIVE VITAMIN AND MINERAL SUPPLEMENT WITH OUT IRON [Concomitant]
  11. META-GENICS VITAMIN D [Concomitant]

REACTIONS (6)
  - Migraine with aura [None]
  - Pain in extremity [None]
  - Migraine [None]
  - Muscle spasms [None]
  - Peripheral coldness [None]
  - Middle insomnia [None]

NARRATIVE: CASE EVENT DATE: 20181010
